FAERS Safety Report 8000158-1 (Version None)
Quarter: 2011Q4

REPORT INFORMATION
  Report Type: 
  Country: None (occurrence: None)
  Receive Date: 20111123
  Receipt Date: 20111107
  Transmission Date: 20120403
  Serious: Yes (Hospitalization, Other)
  Sender: FDA-Public Use
  Company Number: 334737

PATIENT
  Age: 51 Year
  Sex: Female
  Weight: 85.7 kg

DRUGS (7)
  1. VALTURNA (ALISKIREN FUMARATE, SALSARTAN) [Concomitant]
  2. ZOCOR [Concomitant]
  3. LANTUS [Concomitant]
  4. AMLODIPINE [Concomitant]
  5. VICTOZA [Suspect]
     Indication: TYPE 2 DIABETES MELLITUS
     Dosage: , SUBCUTANEOUS
     Route: 058
     Dates: start: 20101101
  6. VICTOZA [Suspect]
     Dates: end: 20110701
  7. METFORMIN HCL [Concomitant]

REACTIONS (7)
  - PANCREATITIS ACUTE [None]
  - DIABETES MELLITUS INADEQUATE CONTROL [None]
  - HYPONATRAEMIA [None]
  - RENAL FAILURE ACUTE [None]
  - GOITRE [None]
  - HYPOTHYROIDISM [None]
  - ASTHENIA [None]
